FAERS Safety Report 11277800 (Version 2)
Quarter: 2015Q3

REPORT INFORMATION
  Report Type: Report from Study
  Country: US (occurrence: US)
  Receive Date: 20150716
  Receipt Date: 20150804
  Transmission Date: 20151125
  Serious: Yes (Hospitalization)
  Sender: FDA-Public Use
  Company Number: US-FRI-1000078233

PATIENT
  Age: 21 Year
  Sex: Female
  Weight: 65 kg

DRUGS (14)
  1. IBUPROFEN. [Concomitant]
     Active Substance: IBUPROFEN
     Dosage: UNK, PRN
     Route: 041
  2. LANTUS [Concomitant]
     Active Substance: INSULIN GLARGINE
     Indication: DIABETES MELLITUS
     Dosage: 20 IU
     Route: 058
     Dates: start: 2000, end: 20150629
  3. KEPPRA [Concomitant]
     Active Substance: LEVETIRACETAM
     Indication: PROPHYLAXIS
     Dosage: 1500 MG
     Route: 048
     Dates: start: 20150401
  4. SUMATRIPTAN. [Concomitant]
     Active Substance: SUMATRIPTAN
     Dosage: PRN
     Route: 041
     Dates: start: 20150629, end: 20150703
  5. LORAZEPAM. [Concomitant]
     Active Substance: LORAZEPAM
     Indication: DEPRESSION
     Route: 042
     Dates: start: 20150629, end: 20150703
  6. LINACLOTIDE [Suspect]
     Active Substance: LINACLOTIDE
     Indication: CONSTIPATION
     Dates: start: 20150512
  7. NACL [Concomitant]
     Active Substance: SODIUM CHLORIDE
     Dosage: 30 ML
     Dates: start: 20150629, end: 20150703
  8. LO LOESTRIN FE [Concomitant]
     Active Substance: ETHINYL ESTRADIOL\NORETHINDRONE ACETATE
     Indication: CONTRACEPTION
     Dosage: 1 TABLET
     Route: 048
     Dates: start: 201503
  9. NOVOLOG [Concomitant]
     Active Substance: INSULIN ASPART
     Indication: DIABETES MELLITUS
     Dosage: 21 IU
     Route: 058
     Dates: start: 2000, end: 20150629
  10. KENALOG TRIAMCINOLONE [Concomitant]
     Indication: ECZEMA
     Dosage: 2 APPLICATIONS
     Route: 061
     Dates: start: 20150629
  11. IBUPROFEN. [Concomitant]
     Active Substance: IBUPROFEN
     Indication: DYSMENORRHOEA
     Route: 048
     Dates: start: 2010
  12. LANTUS [Concomitant]
     Active Substance: INSULIN GLARGINE
     Dosage: 18 UNITS QD
     Dates: start: 20150629
  13. SUMATRIPTAN. [Concomitant]
     Active Substance: SUMATRIPTAN
     Indication: MIGRAINE
     Route: 048
     Dates: start: 20150328
  14. CLINDESSE [Concomitant]
     Active Substance: CLINDAMYCIN PHOSPHATE
     Indication: BACTERIAL VAGINOSIS
     Dosage: 1 DOSE QD
     Route: 067
     Dates: start: 20150310

REACTIONS (1)
  - Diabetes mellitus [Recovered/Resolved]

NARRATIVE: CASE EVENT DATE: 20150629
